FAERS Safety Report 18243291 (Version 1)
Quarter: 2020Q3

REPORT INFORMATION
  Report Type: Report from Study
  Country: US (occurrence: US)
  Receive Date: 20200908
  Receipt Date: 20200908
  Transmission Date: 20201103
  Serious: Yes (Death, Hospitalization, Other)
  Sender: FDA-Public Use
  Company Number: US-JNJFOC-A-US2019-191613

PATIENT
  Age: 74 Year
  Sex: Male

DRUGS (20)
  1. AMBRISENTAN [Concomitant]
     Active Substance: AMBRISENTAN
     Dosage: 10 MG DAILY
     Dates: start: 20200408, end: 20200603
  2. FERROUS GLUCONATE [Concomitant]
     Active Substance: FERROUS GLUCONATE
     Dosage: 324 MG DAILY
     Dates: start: 20191116, end: 20200603
  3. PANTOPRAZOLE [Concomitant]
     Active Substance: PANTOPRAZOLE
     Dosage: 40 MG DAILY
     Dates: start: 20180918, end: 20200603
  4. SITAGLIPTIN [Concomitant]
     Active Substance: SITAGLIPTIN
     Dosage: 100 MG DAILY
     Dates: start: 20181106, end: 20200603
  5. PROAIR HFA [Concomitant]
     Active Substance: ALBUTEROL SULFATE
     Dosage: 90 MCG / 2 PUFF PRN
     Dates: start: 20170911, end: 20200603
  6. TIOTROPIUM BROMIDE [Concomitant]
     Active Substance: TIOTROPIUM BROMIDE
     Dosage: 2.5 MCG INH. DAILY
     Dates: start: 20181106, end: 20200603
  7. WARFARIN [Concomitant]
     Active Substance: WARFARIN
     Dosage: 5 MG DAILY
     Dates: start: 20180330, end: 20200603
  8. POLYETHYLENE GLYCOL [Concomitant]
     Active Substance: POLYETHYLENE GLYCOLS
     Dosage: 17 GRAM DAILY
     Dates: start: 20180927, end: 20200603
  9. OPSUMIT [Suspect]
     Active Substance: MACITENTAN
     Dosage: 10 MG, QD
     Route: 048
     Dates: start: 20190924, end: 20200408
  10. AMIODARONE [Concomitant]
     Active Substance: AMIODARONE
     Dosage: 200 MG BID
     Dates: start: 20190315, end: 20200603
  11. TRAMADOL. [Concomitant]
     Active Substance: TRAMADOL
     Dosage: 50 MG PRN
     Dates: start: 20180330, end: 20200603
  12. SPIRONOLACTONE. [Concomitant]
     Active Substance: SPIRONOLACTONE
     Dosage: 25 MG DAILY
     Dates: start: 20190711, end: 20200603
  13. ATORVASTATIN [Concomitant]
     Active Substance: ATORVASTATIN
     Dosage: 20 MG NIGHTLY
     Dates: start: 20180330, end: 20200603
  14. FUROSEMIDE. [Concomitant]
     Active Substance: FUROSEMIDE
     Dosage: 80 MG BID
     Dates: start: 20180730, end: 20200603
  15. METOPROLOL SUCCINATE. [Concomitant]
     Active Substance: METOPROLOL SUCCINATE
     Dosage: 50 MG DAILY
     Dates: start: 20180330, end: 20200603
  16. TAMSULOSIN [Concomitant]
     Active Substance: TAMSULOSIN
     Dosage: 0.47 MG DAILY
     Dates: start: 20181106, end: 20200603
  17. OPSUMIT [Suspect]
     Active Substance: MACITENTAN
     Indication: PULMONARY ARTERIAL HYPERTENSION
     Dosage: 10 MG, QD
     Route: 048
     Dates: start: 20141008, end: 201908
  18. APIXABAN [Concomitant]
     Active Substance: APIXABAN
     Dosage: 5 MG DAILY
     Dates: start: 20180311, end: 20200422
  19. INSULIN PORK [Concomitant]
     Active Substance: INSULIN PORK\INSULIN PURIFIED PORK
     Dosage: 16 UNITS BID
     Dates: start: 20180330, end: 20200603
  20. ADEMPAS [Concomitant]
     Active Substance: RIOCIGUAT
     Dosage: 2.5 MG TID
     Dates: start: 20180705, end: 20200603

REACTIONS (8)
  - General physical health deterioration [Unknown]
  - Heart rate irregular [Recovered/Resolved]
  - Blood glucose decreased [Unknown]
  - Product dose omission issue [Recovered/Resolved]
  - Dizziness [Unknown]
  - Dyspnoea [Unknown]
  - Oedema peripheral [Not Recovered/Not Resolved]
  - Pneumonia [Fatal]

NARRATIVE: CASE EVENT DATE: 20190530
